FAERS Safety Report 16654975 (Version 1)
Quarter: 2019Q3

REPORT INFORMATION
  Report Type: Spontaneous
  Country: US (occurrence: US)
  Receive Date: 20190801
  Receipt Date: 20190801
  Transmission Date: 20191004
  Serious: No
  Sender: FDA-Public Use
  Company Number: US-AUROBINDO-AUR-APU-2018-034923

PATIENT
  Sex: Female

DRUGS (2)
  1. ALPRAZOLAM EXTENDED-RELEASE TABLETS [Suspect]
     Active Substance: ALPRAZOLAM
     Indication: PANIC DISORDER
     Dosage: UNK
  2. ALPRAZOLAM EXTENDED-RELEASE TABLETS [Suspect]
     Active Substance: ALPRAZOLAM
     Indication: ANXIETY DISORDER

REACTIONS (2)
  - Miliaria [Unknown]
  - Pruritus [Unknown]
